FAERS Safety Report 11429475 (Version 1)
Quarter: 2015Q3

REPORT INFORMATION
  Report Type: Spontaneous
  Country: US (occurrence: US)
  Receive Date: 20150828
  Receipt Date: 20150828
  Transmission Date: 20151125
  Serious: No
  Sender: FDA-Public Use
  Company Number: PHEH2014US017836

PATIENT
  Sex: Female

DRUGS (6)
  1. RECLAST [Suspect]
     Active Substance: ZOLEDRONIC ACID
     Dosage: UNK UKN, UNK
     Route: 042
     Dates: start: 20140828
  2. BUPROPION. [Concomitant]
     Active Substance: BUPROPION
     Dosage: UNK UKN, UNK
  3. LIPITOR [Concomitant]
     Active Substance: ATORVASTATIN CALCIUM
     Dosage: UNK UKN, UNK
  4. SYNTHROID [Concomitant]
     Active Substance: LEVOTHYROXINE SODIUM
     Dosage: UNK UKN, UNK
  5. MICARDIS [Concomitant]
     Active Substance: TELMISARTAN
     Dosage: UNK UKN, UNK
  6. NEXIUM [Concomitant]
     Active Substance: ESOMEPRAZOLE MAGNESIUM
     Dosage: UNK UKN, UNK

REACTIONS (3)
  - Throat irritation [Unknown]
  - Headache [Unknown]
  - Dyspepsia [Unknown]
